FAERS Safety Report 5295894-4 (Version None)
Quarter: 2007Q2

REPORT INFORMATION
  Report Type: 
  Country: None (occurrence: None)
  Receive Date: 20070413
  Receipt Date: 20070410
  Transmission Date: 20071010
  Serious: Yes (Death, Other)
  Sender: FDA-Public Use
  Company Number: PHBS2007ES05318

PATIENT
  Age: 48 Year
  Sex: Male

DRUGS (5)
  1. ZOLEDRONIC ACID [Suspect]
     Indication: OSTEOPOROSIS
     Dosage: 4 MG, UNK
     Dates: start: 20040301
  2. BORTEZOMIB [Suspect]
  3. DEXAMETHASONE [Suspect]
     Dates: start: 20041201, end: 20060201
  4. THALIDOMIDE [Suspect]
     Dates: start: 20041201, end: 20060201
  5. NATECAL D [Suspect]
     Dates: start: 20040301, end: 20051101

REACTIONS (5)
  - ABSCESS JAW [None]
  - CHRONIC OBSTRUCTIVE PULMONARY DISEASE [None]
  - FISTULA [None]
  - OSTEONECROSIS [None]
  - PAIN [None]
